FAERS Safety Report 6070203-1 (Version None)
Quarter: 2009Q1

REPORT INFORMATION
  Report Type: 
  Country: None (occurrence: None)
  Receive Date: 20090209
  Receipt Date: 20090127
  Transmission Date: 20090719
  Serious: Yes (Life-Threatening, Congenital Anomaly)
  Sender: FDA-Public Use
  Company Number: US-PFIZER INC-2008049840

PATIENT
  Sex: Female

DRUGS (1)
  1. ZOLOFT [Suspect]
     Dosage: 25 MG, UNK
     Route: 064
     Dates: start: 19930101

REACTIONS (11)
  - BLOOD GLUCOSE INCREASED [None]
  - CONGENITAL ANOMALY [None]
  - CONGENITAL CYSTIC KIDNEY DISEASE [None]
  - DECREASED APPETITE [None]
  - DRUG EXPOSURE DURING PREGNANCY [None]
  - HYPERPARATHYROIDISM [None]
  - RENAL CYST [None]
  - RENAL IMPAIRMENT [None]
  - SOLITARY KIDNEY [None]
  - URINARY TRACT INFECTION [None]
  - UTERINE DISORDER [None]
